FAERS Safety Report 23937673 (Version 2)
Quarter: 2024Q2

REPORT INFORMATION
  Report Type: Spontaneous
  Country: CL (occurrence: CL)
  Receive Date: 20240604
  Receipt Date: 20240614
  Transmission Date: 20240715
  Serious: Yes (Hospitalization, Other)
  Sender: FDA-Public Use
  Company Number: CL-ORGANON-O2406CHL000079

PATIENT
  Age: 23 Year
  Sex: Female

DRUGS (1)
  1. ETONOGESTREL [Suspect]
     Active Substance: ETONOGESTREL
     Dosage: 1 IMPLANT
     Route: 059
     Dates: start: 20160401, end: 20240528

REACTIONS (7)
  - Ectopic pregnancy with contraceptive device [Recovered/Resolved]
  - Genital haemorrhage [Recovering/Resolving]
  - Device dislocation [Recovered/Resolved]
  - Abortion of ectopic pregnancy [Unknown]
  - Unintended pregnancy [Recovered/Resolved]
  - Complication of device removal [Recovered/Resolved]
  - Incorrect product administration duration [Unknown]

NARRATIVE: CASE EVENT DATE: 20190401
